FAERS Safety Report 6788785-0 (Version None)
Quarter: 2010Q2

REPORT INFORMATION
  Report Type: 
  Country: None (occurrence: None)
  Receive Date: 20100621
  Receipt Date: 20100603
  Transmission Date: 20101027
  Serious: Yes (Other)
  Sender: FDA-Public Use
  Company Number: 20108903

PATIENT
  Sex: Male

DRUGS (1)
  1. LIORESAL [Suspect]
     Indication: MUSCLE SPASTICITY
     Dosage: 155 MCG, DAILY, INTRATHECAL
     Route: 037

REACTIONS (4)
  - ANXIETY [None]
  - CRYING [None]
  - MEDICAL DEVICE COMPLICATION [None]
  - SWELLING [None]
